FAERS Safety Report 7313886-8 (Version None)
Quarter: 2011Q1

REPORT INFORMATION
  Report Type: 
  Country: None (occurrence: None)
  Receive Date: 20110217
  Receipt Date: 20110217
  Transmission Date: 20110831
  Serious: Yes (Other)
  Sender: FDA-Public Use
  Company Number: None

PATIENT
  Sex: Male
  Weight: 81.4 kg

DRUGS (1)
  1. ERBITUX [Suspect]
     Indication: TONSIL CANCER
     Dosage: 740 MG WEEKLY IV
     Route: 042
     Dates: start: 20110202

REACTIONS (7)
  - HYPOTENSION [None]
  - INFUSION RELATED REACTION [None]
  - PARAESTHESIA [None]
  - SWELLING FACE [None]
  - DYSPNOEA [None]
  - PRURITUS [None]
  - URTICARIA [None]
